FAERS Safety Report 7355897-2 (Version None)
Quarter: 2011Q1

REPORT INFORMATION
  Report Type: 
  Country: None (occurrence: None)
  Receive Date: 20110316
  Receipt Date: 20101105
  Transmission Date: 20110831
  Serious: No
  Sender: FDA-Public Use
  Company Number: US-BAYER-201023562BCC

PATIENT
  Sex: Female
  Weight: 74.545 kg

DRUGS (5)
  1. ALEVE [Suspect]
     Indication: MUSCULOSKELETAL CHEST PAIN
     Dosage: BOTTLE COUNT 24S
     Dates: start: 20101105
  2. PAXIL [Concomitant]
  3. AMLODIPINE [Concomitant]
  4. TRIAMTERENE [Concomitant]
  5. LEVOTHROID [Concomitant]

REACTIONS (1)
  - MUSCULOSKELETAL CHEST PAIN [None]
